FAERS Safety Report 14967481 (Version 1)
Quarter: 2018Q2

REPORT INFORMATION
  Report Type: Spontaneous
  Country: JP (occurrence: JP)
  Receive Date: 20180604
  Receipt Date: 20180604
  Transmission Date: 20180711
  Serious: Yes (Other)
  Sender: FDA-Public Use
  Company Number: JP-TEVA-2018-JP-900105

PATIENT
  Age: 59 Year
  Sex: Male

DRUGS (1)
  1. IMATINIB [Suspect]
     Active Substance: IMATINIB
     Indication: CHRONIC MYELOID LEUKAEMIA
     Dosage: 300-400 MG DAILY (EXACT DOSAGE NOT STATED)
     Route: 065

REACTIONS (2)
  - Acute promyelocytic leukaemia [Recovering/Resolving]
  - Philadelphia chromosome negative [Recovering/Resolving]
